FAERS Safety Report 12757534 (Version 4)
Quarter: 2016Q4

REPORT INFORMATION
  Report Type: Other
  Country: CA (occurrence: CA)
  Receive Date: 20160919
  Receipt Date: 20161121
  Transmission Date: 20170207
  Serious: Yes (Hospitalization, Other)
  Sender: FDA-Public Use
  Company Number: CA-SHIRE-CA201612222

PATIENT
  Age: 50 Year
  Sex: Female

DRUGS (14)
  1. REVESTIVE [Suspect]
     Active Substance: TEDUGLUTIDE
     Dosage: 3.5 MG, 1X/DAY:QD
     Route: 058
     Dates: start: 20161010, end: 20161113
  2. POTASSIUM [Concomitant]
     Active Substance: POTASSIUM
     Indication: PRODUCT USED FOR UNKNOWN INDICATION
     Dosage: UNK UNK, 1X/DAY:QD
     Route: 065
  3. REMICADE [Concomitant]
     Active Substance: INFLIXIMAB
     Indication: PRODUCT USED FOR UNKNOWN INDICATION
     Dosage: UNK, 1X/DAY:QD
     Route: 065
  4. REVESTIVE [Suspect]
     Active Substance: TEDUGLUTIDE
     Indication: SHORT-BOWEL SYNDROME
     Dosage: 3.12 MG, 1X/DAY:QD
     Route: 058
     Dates: start: 20160112, end: 20160928
  5. PREVACID [Concomitant]
     Active Substance: LANSOPRAZOLE
     Indication: PRODUCT USED FOR UNKNOWN INDICATION
     Dosage: UNK, 2X/DAY:BID
     Route: 065
  6. HUMIRA [Concomitant]
     Active Substance: ADALIMUMAB
     Indication: PRODUCT USED FOR UNKNOWN INDICATION
     Dosage: UNK, 1X/DAY:QD
     Route: 065
  7. CIPROFLOXACIN. [Concomitant]
     Active Substance: CIPROFLOXACIN
     Indication: URINARY TRACT INFECTION
     Dosage: UNK, UNKNOWN
     Route: 065
     Dates: start: 20160117
  8. TPN [Concomitant]
     Active Substance: AMINO ACIDS\DEXTROSE\ELECTROLYTES NOS\SOYBEAN OIL
     Indication: PRODUCT USED FOR UNKNOWN INDICATION
     Dosage: 1500 ML, QOD
     Route: 065
  9. PERCOCET [Concomitant]
     Active Substance: ACETAMINOPHEN\OXYCODONE HYDROCHLORIDE
     Indication: PAIN
     Dosage: 4-5 TABLETS, AS REQ^D
     Route: 065
  10. REVESTIVE [Suspect]
     Active Substance: TEDUGLUTIDE
     Dosage: 3.12 MG, 1X/DAY:QD
     Route: 058
     Dates: start: 20161114
  11. LOVENOX [Concomitant]
     Active Substance: ENOXAPARIN SODIUM
     Indication: PRODUCT USED FOR UNKNOWN INDICATION
     Dosage: 80 MG, 1X/DAY:QD
     Route: 065
  12. CODEINE [Concomitant]
     Active Substance: CODEINE
     Indication: PAIN
     Dosage: 30-60 MG, 4X/DAY:QID
     Route: 065
     Dates: start: 2016
  13. PREDNISONE. [Concomitant]
     Active Substance: PREDNISONE
     Indication: PRODUCT USED FOR UNKNOWN INDICATION
     Dosage: UNK, 1X/DAY:QD
     Route: 065
  14. MAGNESIUM [Concomitant]
     Active Substance: MAGNESIUM
     Indication: PRODUCT USED FOR UNKNOWN INDICATION
     Dosage: UNK UNK, 1X/DAY:QD
     Route: 065

REACTIONS (24)
  - Urinary retention [Unknown]
  - Bowel movement irregularity [Unknown]
  - Back pain [Unknown]
  - Cholelithiasis [Unknown]
  - Seroma [Unknown]
  - Presyncope [Unknown]
  - Renal pain [Unknown]
  - Palpitations [Recovered/Resolved]
  - Panic attack [Unknown]
  - Weight decreased [Unknown]
  - Urine abnormality [Unknown]
  - Deep vein thrombosis [Unknown]
  - Bladder spasm [Unknown]
  - Oedema peripheral [Not Recovered/Not Resolved]
  - Thrombosis [Not Recovered/Not Resolved]
  - Chromaturia [Unknown]
  - Gallbladder disorder [Recovered/Resolved]
  - Anxiety [Recovered/Resolved]
  - Incorrect dose administered [Recovered/Resolved]
  - Intentional product misuse [Recovered/Resolved]
  - Hypoaesthesia [Unknown]
  - Urinary tract infection [Recovered/Resolved]
  - Gastrointestinal stoma output increased [Unknown]
  - Drug ineffective [Unknown]

NARRATIVE: CASE EVENT DATE: 2016
